FAERS Safety Report 4695743-9 (Version None)
Quarter: 2005Q2

REPORT INFORMATION
  Report Type: 
  Country: None (occurrence: None)
  Receive Date: 20050621
  Receipt Date: 20050609
  Transmission Date: 20051028
  Serious: Yes (Hospitalization)
  Sender: FDA-Public Use
  Company Number: AU-AMGEN-US138721

PATIENT
  Age: 50 Year
  Sex: Female

DRUGS (2)
  1. KEPIVANCE [Suspect]
     Indication: MUCOSAL INFLAMMATION
     Route: 042
     Dates: start: 20050420, end: 20050502
  2. BUSULFAN [Interacting]
     Route: 048
     Dates: start: 20050423, end: 20050427

REACTIONS (4)
  - BURNING SENSATION [None]
  - DRUG INTERACTION [None]
  - SKIN EXFOLIATION [None]
  - SKIN HYPERTROPHY [None]
